FAERS Safety Report 6114472-8 (Version None)
Quarter: 2009Q1

REPORT INFORMATION
  Report Type: 
  Country: None (occurrence: None)
  Receive Date: 20090313
  Receipt Date: 20090212
  Transmission Date: 20090719
  Serious: No
  Sender: FDA-Public Use
  Company Number: US-BAYER-200910594BCC

PATIENT
  Age: 51 Year
  Sex: Male
  Weight: 77 kg

DRUGS (4)
  1. ALEVE [Suspect]
     Indication: MUSCULOSKELETAL PAIN
     Dosage: TOTAL DAILY DOSE: 440 MG  UNIT DOSE: 220 MG
     Dates: start: 20090212
  2. ALLOPURINOL [Concomitant]
  3. ATENOLOL [Concomitant]
  4. CENTRUM MULTIVITAMIN [Concomitant]

REACTIONS (1)
  - MUSCULOSKELETAL PAIN [None]
